FAERS Safety Report 8517383-3 (Version None)
Quarter: 2012Q3

REPORT INFORMATION
  Report Type: 
  Country: None (occurrence: None)
  Receive Date: 20120718
  Receipt Date: 20120710
  Transmission Date: 20120928
  Serious: Yes (Other)
  Sender: FDA-Public Use
  Company Number: US-US-EMD SERONO, INC.-7146715

PATIENT
  Sex: Female

DRUGS (4)
  1. TRAMADOL HCL [Concomitant]
     Indication: PAIN
  2. REBIF [Suspect]
     Route: 058
     Dates: start: 20090909
  3. VICODIN [Concomitant]
     Indication: PAIN
  4. REBIF [Suspect]
     Indication: MULTIPLE SCLEROSIS

REACTIONS (3)
  - FALL [None]
  - CONTUSION [None]
  - PNEUMONIA [None]
